FAERS Safety Report 7014890-X (Version None)
Quarter: 2010Q3

REPORT INFORMATION
  Report Type: 
  Country: None (occurrence: None)
  Receive Date: 20100927
  Receipt Date: 20100104
  Transmission Date: 20110219
  Serious: No
  Sender: FDA-Public Use
  Company Number: US-ASTRAZENECA-2010SE00112

PATIENT
  Age: 64 Year
  Sex: Female
  Weight: 81.6 kg

DRUGS (5)
  1. ARIMIDEX [Suspect]
     Route: 048
     Dates: start: 20070101
  2. MOBIC [Concomitant]
     Indication: BACK PAIN
  3. BENICAR [Concomitant]
     Indication: HYPERTENSION
  4. GENERIC PEPTIDES [Concomitant]
     Indication: GASTROOESOPHAGEAL REFLUX DISEASE
  5. VITAMIN D [Concomitant]

REACTIONS (5)
  - BACK PAIN [None]
  - BREAST SWELLING [None]
  - INSOMNIA [None]
  - TENDERNESS [None]
  - VAGINAL INFECTION [None]
